FAERS Safety Report 5976320-6 (Version None)
Quarter: 2008Q4

REPORT INFORMATION
  Report Type: 
  Country: None (occurrence: None)
  Receive Date: 20081202
  Receipt Date: 20081113
  Transmission Date: 20090506
  Serious: No
  Sender: FDA-Public Use
  Company Number: US-B.I. PHARMACEUTICALS,INC./RIDGEFIELD-2008-BP-17290BP

PATIENT
  Sex: Female

DRUGS (10)
  1. SPIRIVA [Suspect]
     Indication: CHRONIC OBSTRUCTIVE PULMONARY DISEASE
     Dosage: 18MCG
     Route: 055
     Dates: start: 20070901
  2. TRAMADOL HCL [Concomitant]
     Route: 048
  3. PRAVASTATIN [Concomitant]
     Indication: BLOOD CHOLESTEROL INCREASED
     Route: 048
  4. NEXIUM [Concomitant]
     Indication: HIATUS HERNIA
     Route: 048
  5. SYNTHROID [Concomitant]
     Indication: HYPOTHYROIDISM
     Route: 048
  6. ATENOLOL [Concomitant]
     Route: 048
  7. LUNESTA [Concomitant]
     Indication: INSOMNIA
     Route: 048
  8. CITRUCEL FIBER [Concomitant]
  9. COLACE [Concomitant]
     Indication: FAECES HARD
     Route: 048
  10. OMEGA 3 SUPPLEMENTS [Concomitant]
     Indication: PROPHYLAXIS
     Route: 048

REACTIONS (5)
  - CATARACT [None]
  - CONJUNCTIVAL CYST [None]
  - CYST RUPTURE [None]
  - URINARY RETENTION [None]
  - VISION BLURRED [None]
